FAERS Safety Report 5708589-7 (Version None)
Quarter: 2008Q1

REPORT INFORMATION
  Report Type: 
  Country: None (occurrence: None)
  Receive Date: 20080303
  Receipt Date: 20080409
  Transmission Date: 20080703
  Serious: Yes (Hospitalization, Other)
  Sender: FDA-Public Use
  Company Number: JP-BRACCO-BRO-010490

PATIENT
  Sex: Female
  Weight: 42 kg

DRUGS (12)
  1. IOPAMIRON [Suspect]
     Indication: PERCUTANEOUS CORONARY INTERVENTION
     Route: 016
     Dates: start: 20051021, end: 20051021
  2. IOPAMIRON [Suspect]
     Indication: ACUTE MYOCARDIAL INFARCTION
     Route: 016
     Dates: start: 20051021, end: 20051021
  3. IOPAMIRON [Suspect]
     Indication: ARTERIOGRAM CORONARY
     Route: 016
     Dates: start: 20051021, end: 20051021
  4. OLIVES K [Concomitant]
     Route: 065
  5. MYSLEE [Concomitant]
     Route: 048
  6. ARTIST [Concomitant]
     Route: 048
  7. PANALDINE [Concomitant]
     Route: 048
  8. ITOROL [Concomitant]
     Route: 048
  9. LIPITOR                            /01326102/ [Concomitant]
     Route: 048
  10. ASPIRIN [Concomitant]
     Route: 048
  11. MOBIC [Concomitant]
     Route: 048
  12. ANTIEPILEPTICS [Concomitant]
     Route: 065

REACTIONS (4)
  - BRAIN SCAN ABNORMAL [None]
  - CLONIC CONVULSION [None]
  - HEMIANOPIA [None]
  - LOSS OF CONSCIOUSNESS [None]
